FAERS Safety Report 25080029 (Version 2)
Quarter: 2025Q1

REPORT INFORMATION
  Report Type: Spontaneous
  Country: US (occurrence: US)
  Receive Date: 20250314
  Receipt Date: 20250325
  Transmission Date: 20250408
  Serious: No
  Sender: MYLAN
  Company Number: US-MYLANLABS-2025M1020220

PATIENT
  Sex: Female

DRUGS (1)
  1. PREGABALIN [Suspect]
     Active Substance: PREGABALIN
     Indication: Pain
     Dosage: 50 MILLIGRAM, BID (ONE PILL TWICE A DAY, EVERY 12 HOURS)

REACTIONS (3)
  - Off label use [Unknown]
  - Incorrect product administration duration [Unknown]
  - Insomnia [Recovered/Resolved]
